FAERS Safety Report 6592866-4 (Version None)
Quarter: 2010Q1

REPORT INFORMATION
  Report Type: 
  Country: None (occurrence: None)
  Receive Date: 20100205
  Receipt Date: 20100125
  Transmission Date: 20100710
  Serious: Yes (Congenital Anomaly)
  Sender: FDA-Public Use
  Company Number: B0600592A

PATIENT
  Sex: 0

DRUGS (1)
  1. LAMOTRIGINE [Suspect]
     Dosage: TRANSPLACENTARY
     Route: 064

REACTIONS (4)
  - CONGENITAL CYSTIC KIDNEY DISEASE [None]
  - CONGENITAL URETEROCELE [None]
  - KIDNEY MALFORMATION [None]
  - MATERNAL DRUGS AFFECTING FOETUS [None]
